FAERS Safety Report 7374730-6 (Version None)
Quarter: 2011Q1

REPORT INFORMATION
  Report Type: 
  Country: None (occurrence: None)
  Receive Date: 20110325
  Receipt Date: 20100913
  Transmission Date: 20110831
  Serious: Yes (Other)
  Sender: FDA-Public Use
  Company Number: US-MYLANLABS-2010S1016798

PATIENT
  Sex: Male

DRUGS (2)
  1. FENTANYL-100 [Suspect]
     Indication: SPINAL FRACTURE
  2. FENTANYL-100 [Suspect]
     Indication: RIB FRACTURE

REACTIONS (1)
  - DEPENDENCE [None]
